FAERS Safety Report 14343384 (Version 4)
Quarter: 2018Q1

REPORT INFORMATION
  Report Type: Spontaneous
  Country: AU (occurrence: AU)
  Receive Date: 20180102
  Receipt Date: 20180320
  Transmission Date: 20180509
  Serious: Yes (Other)
  Sender: FDA-Public Use
  Company Number: AU-OTSUKA-2017_028717

PATIENT
  Sex: Male

DRUGS (4)
  1. SEROQUEL/QUETIAPINE [Concomitant]
     Indication: SLEEP DISORDER
     Dosage: AT NIGHT
     Route: 048
  2. SEROQUEL/QUETIAPINE [Concomitant]
     Dosage: AT NIGHT
     Route: 048
  3. ABILIFY MAINTENA [Suspect]
     Active Substance: ARIPIPRAZOLE
     Dosage: 300 MG, QM
     Route: 030
  4. ABILIFY MAINTENA [Suspect]
     Active Substance: ARIPIPRAZOLE
     Indication: BIPOLAR DISORDER
     Dosage: 400 MG, QM
     Route: 030

REACTIONS (13)
  - Gynaecomastia [Unknown]
  - Lethargy [Unknown]
  - Seizure [Unknown]
  - Decreased appetite [Unknown]
  - Hyperprolactinaemia [Unknown]
  - Malaise [Unknown]
  - Urinary incontinence [Unknown]
  - Depression [Unknown]
  - Restlessness [Unknown]
  - Erectile dysfunction [Unknown]
  - Headache [Not Recovered/Not Resolved]
  - Hyperhidrosis [Unknown]
  - Product use in unapproved indication [Unknown]
